FAERS Safety Report 15618386 (Version 5)
Quarter: 2019Q1

REPORT INFORMATION
  Report Type: Spontaneous
  Country: DE (occurrence: DE)
  Receive Date: 20181114
  Receipt Date: 20190306
  Transmission Date: 20190417
  Serious: Yes (Hospitalization)
  Sender: FDA-Public Use
  Company Number: DE-ANIPHARMA-2018-DE-000188

PATIENT
  Age: 54 Year
  Sex: Female
  Weight: 82 kg

DRUGS (4)
  1. PERTUZUMAB. [Suspect]
     Active Substance: PERTUZUMAB
     Dosage: 840 MG Q3WK / 420 MG WEEK
     Route: 042
     Dates: start: 20180124
  2. ANASTROZOLE. [Suspect]
     Active Substance: ANASTROZOLE
     Indication: BREAST CANCER
     Dosage: 1 MG DAILY
     Route: 048
     Dates: start: 20180613
  3. TRASTUZUMAB. [Suspect]
     Active Substance: TRASTUZUMAB
     Dosage: 640 MG Q3WK / 480 MG UNK
     Route: 042
     Dates: start: 20180124
  4. DOCETAXEL. [Suspect]
     Active Substance: DOCETAXEL
     Dosage: 137.25 MG Q3WK
     Route: 042
     Dates: start: 20180124

REACTIONS (9)
  - Peripheral sensory neuropathy [Not Recovered/Not Resolved]
  - Dyshidrotic eczema [Recovered/Resolved]
  - Erysipelas [Recovered/Resolved]
  - Depression [Recovered/Resolved]
  - Dysphagia [Not Recovered/Not Resolved]
  - Cystitis noninfective [Recovered/Resolved]
  - Influenza like illness [Recovered/Resolved]
  - Urinary tract infection [Recovered/Resolved]
  - Borrelia infection [Recovered/Resolved]

NARRATIVE: CASE EVENT DATE: 20180624
